FAERS Safety Report 5265868-8 (Version None)
Quarter: 2007Q1

REPORT INFORMATION
  Report Type: 
  Country: None (occurrence: None)
  Receive Date: 20070312
  Receipt Date: 20070312
  Transmission Date: 20070707
  Serious: Yes (Death)
  Sender: FDA-Public Use
  Company Number: None

PATIENT
  Age: 42 Year
  Sex: Female

DRUGS (5)
  1. STAVUDINE [Suspect]
     Indication: HIV INFECTION
     Dosage: 30MG  BID PO
     Route: 048
     Dates: start: 20061208
  2. EFAVIRENZ [Suspect]
     Indication: HIV INFECTION
     Dosage: 600MG  QHS PO
     Route: 048
     Dates: start: 20061208
  3. LAMIVUDINE [Suspect]
     Indication: HIV INFECTION
     Dosage: 150MG  BID PO
     Route: 048
     Dates: start: 20061208
  4. BACTRIM [Concomitant]
  5. VIT B-6 [Concomitant]

REACTIONS (7)
  - AIDS RELATED COMPLICATION [None]
  - GASTROENTERITIS [None]
  - HEPATOMEGALY [None]
  - ISOSPORIASIS [None]
  - LIVER FUNCTION TEST ABNORMAL [None]
  - NEPHROPATHY [None]
  - WEIGHT DECREASED [None]
